FAERS Safety Report 8984301 (Version 1)
Quarter: 2012Q4

REPORT INFORMATION
  Report Type: 
  Country: FR (occurrence: FR)
  Receive Date: 20121226
  Receipt Date: 20121226
  Transmission Date: 20130627
  Serious: Yes (Other)
  Sender: FDA-Public Use
  Company Number: FR-MERCK-1212FRA008926

PATIENT
  Age: 40 Year
  Sex: Female

DRUGS (2)
  1. AERIUS [Suspect]
     Indication: RHINITIS ALLERGIC
     Dosage: 1 DF, qd
     Route: 048
     Dates: start: 2012
  2. INSULIN [Concomitant]
     Indication: TYPE 1 DIABETES MELLITUS

REACTIONS (1)
  - Renal impairment [Not Recovered/Not Resolved]
